FAERS Safety Report 7597618-4 (Version None)
Quarter: 2011Q3

REPORT INFORMATION
  Report Type: 
  Country: None (occurrence: None)
  Receive Date: 20110708
  Receipt Date: 20110630
  Transmission Date: 20111222
  Serious: Yes (Hospitalization)
  Sender: FDA-Public Use
  Company Number: JP-ROCHE-787188

PATIENT
  Sex: Female
  Weight: 53 kg

DRUGS (15)
  1. REMICADE [Suspect]
     Route: 042
     Dates: start: 20100804
  2. PREDNISONE [Concomitant]
     Dates: start: 20090916
  3. ACTEMRA [Suspect]
     Indication: RHEUMATOID ARTHRITIS
     Route: 065
     Dates: start: 20110309
  4. REMICADE [Suspect]
     Route: 042
     Dates: start: 20100609
  5. REMICADE [Suspect]
     Route: 042
     Dates: start: 20101117
  6. REMICADE [Suspect]
     Route: 042
     Dates: start: 20110112
  7. SELBEX [Concomitant]
     Indication: PROPHYLAXIS
     Dates: start: 20110308
  8. SELBEX [Concomitant]
     Dates: start: 20110308
  9. REMICADE [Suspect]
     Route: 042
     Dates: start: 20101215
  10. REMICADE [Suspect]
     Route: 042
     Dates: start: 20100929
  11. REMICADE [Suspect]
     Route: 042
     Dates: start: 20110209
  12. FOLIC ACID [Concomitant]
     Indication: PROPHYLAXIS
     Dosage: FREQUENCY: IN ONE WEEK
  13. REMICADE [Suspect]
     Indication: RHEUMATOID ARTHRITIS
     Dosage: FORM: LYPOPHILIZED POWDER
     Route: 042
     Dates: start: 20090916
  14. REMICADE [Suspect]
     Route: 042
     Dates: start: 20091221
  15. METHOTREXATE [Concomitant]
     Route: 048
     Dates: end: 20110211

REACTIONS (8)
  - PYREXIA [None]
  - INFECTIOUS PERITONITIS [None]
  - ABDOMINAL PAIN [None]
  - LUPUS-LIKE SYNDROME [None]
  - LEUKOPENIA [None]
  - ARTHRALGIA [None]
  - ERYTHEMA [None]
  - C-REACTIVE PROTEIN INCREASED [None]
